FAERS Safety Report 12153196 (Version 1)
Quarter: 2016Q1

REPORT INFORMATION
  Report Type: Report from Study
  Country: US (occurrence: US)
  Receive Date: 20160305
  Receipt Date: 20160305
  Transmission Date: 20160526
  Serious: Yes (Hospitalization)
  Sender: FDA-Public Use
  Company Number: US-BIOGEN-2016BI00195332

PATIENT
  Age: 60 Year
  Sex: Female

DRUGS (2)
  1. AVONEX [Suspect]
     Active Substance: INTERFERON BETA-1A
     Indication: MULTIPLE SCLEROSIS
     Route: 030
     Dates: start: 20000201, end: 20031209
  2. AVONEX [Suspect]
     Active Substance: INTERFERON BETA-1A
     Route: 030
     Dates: start: 20160222

REACTIONS (2)
  - Insomnia [Not Recovered/Not Resolved]
  - Adverse reaction [Not Recovered/Not Resolved]

NARRATIVE: CASE EVENT DATE: 20160222
